FAERS Safety Report 17294000 (Version 1)
Quarter: 2020Q1

REPORT INFORMATION
  Report Type: Spontaneous
  Country: US (occurrence: US)
  Receive Date: 20200120
  Receipt Date: 20200120
  Transmission Date: 20200409
  Serious: Yes (Other)
  Sender: FDA-Public Use
  Company Number: None

PATIENT
  Age: 50 Year
  Sex: Male
  Weight: 87.75 kg

DRUGS (1)
  1. LEVOFLOXACIN. [Suspect]
     Active Substance: LEVOFLOXACIN
     Indication: RESPIRATORY TRACT INFECTION
     Dosage: ?          QUANTITY:1 CAPSULE(S);?
     Route: 048
     Dates: start: 20200107, end: 20200109

REACTIONS (8)
  - Hypoaesthesia [None]
  - Chapped lips [None]
  - Neuropathy peripheral [None]
  - Skin lesion [None]
  - Arthralgia [None]
  - Oral disorder [None]
  - Pain [None]
  - Paraesthesia [None]

NARRATIVE: CASE EVENT DATE: 20200109
